FAERS Safety Report 7619500-6 (Version None)
Quarter: 2011Q3

REPORT INFORMATION
  Report Type: 
  Country: None (occurrence: None)
  Receive Date: 20110719
  Receipt Date: 20110118
  Transmission Date: 20111222
  Serious: Yes (Other)
  Sender: FDA-Public Use
  Company Number: IE-BRACCO-000078

PATIENT
  Age: 58 Year
  Sex: Male

DRUGS (5)
  1. PLAVIX [Concomitant]
     Dosage: STRENGTH: 75 MG
  2. CARDICOR [Concomitant]
     Dosage: STRENGTH: 1.25 MG
  3. LIPITOR [Concomitant]
     Dosage: STRENGTH: 40 MG
  4. IOPAMIDOL [Suspect]
     Indication: ANGIOGRAM
     Route: 022
     Dates: start: 20101220, end: 20101220
  5. ASPIRIN [Concomitant]

REACTIONS (3)
  - VISION BLURRED [None]
  - RASH [None]
  - HEADACHE [None]
